FAERS Safety Report 8784291 (Version 1)
Quarter: 2012Q4

REPORT INFORMATION
  Report Type: Spontaneous
  Country: US (occurrence: None)
  Receive Date: 20120905
  Receipt Date: 20120905
  Transmission Date: 20130627
  Serious: Yes (Other)
  Sender: FDA-Public Use
  Company Number: None

PATIENT
  Age: 59 Year
  Sex: Female
  Weight: 67.59 kg

DRUGS (7)
  1. BYDUREON [Suspect]
     Indication: TYPE II DIABETES MELLITUS
     Dosage: Weekly ID
  2. LIPITOR [Concomitant]
  3. METFORMIN [Concomitant]
  4. LYRICA [Concomitant]
  5. CYMBALTA [Concomitant]
  6. PROZAC [Concomitant]
  7. ESTRADIOL [Concomitant]

REACTIONS (4)
  - Alopecia [None]
  - Injection site mass [None]
  - Injection site pruritus [None]
  - Injection site ulcer [None]
